FAERS Safety Report 16643883 (Version 1)
Quarter: 2019Q3

REPORT INFORMATION
  Report Type: Spontaneous
  Country: US (occurrence: US)
  Receive Date: 20190729
  Receipt Date: 20190729
  Transmission Date: 20191004
  Serious: No
  Sender: FDA-Public Use
  Company Number: US-EMD SERONO-234829K09USA

PATIENT
  Sex: Female

DRUGS (3)
  1. REBIF [Suspect]
     Active Substance: INTERFERON BETA-1A
     Indication: MULTIPLE SCLEROSIS
     Dosage: REBIF PREFILLED SYRINGE
     Route: 058
     Dates: start: 20090227
  2. REBIF [Suspect]
     Active Substance: INTERFERON BETA-1A
     Dosage: REBIF PREFILLED SYRINGE
     Route: 058
     Dates: start: 2009
  3. REBIF [Suspect]
     Active Substance: INTERFERON BETA-1A
     Dosage: REBIF PREFILLED SYRINGE
     Route: 058
     Dates: start: 2009

REACTIONS (11)
  - Muscle spasms [Recovered/Resolved]
  - Fatigue [Unknown]
  - Chills [Recovered/Resolved]
  - Limb discomfort [Unknown]
  - Muscular weakness [Unknown]
  - Abdominal pain [Recovered/Resolved]
  - Hypoaesthesia [Unknown]
  - Memory impairment [Unknown]
  - Product dose omission [Unknown]
  - Injection site pruritus [Unknown]
  - Groin pain [Unknown]

NARRATIVE: CASE EVENT DATE: 2009
